FAERS Safety Report 13966303 (Version 1)
Quarter: 2017Q3

REPORT INFORMATION
  Report Type: Spontaneous
  Country: US (occurrence: US)
  Receive Date: 20170913
  Receipt Date: 20170913
  Transmission Date: 20171128
  Serious: Yes (Other)
  Sender: FDA-Public Use
  Company Number: US-IMPAX LABORATORIES, INC-2017-IPXL-02656

PATIENT
  Age: 46 Year
  Sex: Male

DRUGS (4)
  1. BACLOFEN. [Suspect]
     Active Substance: BACLOFEN
     Indication: PRODUCT USE IN UNAPPROVED INDICATION
     Dosage: 75 ?G, UNK
     Route: 037
  2. BOTULINUM TOXIN [Suspect]
     Active Substance: BOTULINUM TOXIN NOS
     Dosage: 600 IU, EVERY 3 MONTHS
     Route: 030
  3. BACLOFEN. [Suspect]
     Active Substance: BACLOFEN
     Indication: DIPLEGIA
     Dosage: UNK
     Route: 048
  4. BOTULINUM TOXIN [Suspect]
     Active Substance: BOTULINUM TOXIN NOS
     Indication: DIPLEGIA
     Dosage: UNK
     Route: 030

REACTIONS (6)
  - Cerebral ventricle dilatation [Recovered/Resolved]
  - Cerebrospinal fluid leakage [Recovered/Resolved]
  - Bacterial test positive [Recovered/Resolved]
  - Staphylococcal sepsis [Recovered/Resolved]
  - Deep vein thrombosis [Unknown]
  - Drug ineffective for unapproved indication [Unknown]
